FAERS Safety Report 4479848-3 (Version None)
Quarter: 2004Q3

REPORT INFORMATION
  Report Type: 
  Country: None (occurrence: None)
  Receive Date: 20040923
  Receipt Date: 20040628
  Transmission Date: 20050211
  Serious: No
  Sender: FDA-Public Use
  Company Number: USA040464874

PATIENT
  Age: 75 Year
  Sex: Male
  Weight: 54 kg

DRUGS (6)
  1. FORTEO [Suspect]
     Indication: OSTEOPOROSIS
     Dosage: 20 UG/1 DAY
     Dates: start: 20040413
  2. VIAGRA [Concomitant]
  3. ATIVAN [Concomitant]
  4. QUINIDINE SULFATE [Concomitant]
  5. VITAMIN D [Concomitant]
  6. FOLIC ACID [Concomitant]

REACTIONS (4)
  - FEELING COLD [None]
  - HEADACHE [None]
  - INJECTION SITE HAEMORRHAGE [None]
  - INJECTION SITE PAIN [None]
